FAERS Safety Report 19294979 (Version 1)
Quarter: 2021Q2

REPORT INFORMATION
  Report Type: Other
  Country: NL (occurrence: FR)
  Receive Date: 20210524
  Receipt Date: 20210524
  Transmission Date: 20210717
  Serious: Yes (Other)
  Sender: FDA-Public Use
  Company Number: NL-SIEMENS HEALTHCARE LIMITED-PET-000089-2020

PATIENT
  Age: 55 Year
  Sex: Male
  Weight: 103 kg

DRUGS (2)
  1. IOMERON [Suspect]
     Active Substance: IOMEPROL
     Indication: POSITRON EMISSION TOMOGRAM
     Dosage: 150 MILLILITER, SINGLE
     Route: 041
     Dates: start: 20200813, end: 20200813
  2. FLUORODEOXYGLUCOSE 18F [Suspect]
     Active Substance: FLUDEOXYGLUCOSE F-18
     Indication: POSITRON EMISSION TOMOGRAM
     Dosage: 1 DOSAGE FORM, SINGLE
     Route: 041
     Dates: start: 20200813, end: 20200813

REACTIONS (1)
  - Hypersensitivity [Recovered/Resolved]

NARRATIVE: CASE EVENT DATE: 20200813
